FAERS Safety Report 15558330 (Version 1)
Quarter: 2018Q4

REPORT INFORMATION
  Report Type: Spontaneous
  Country: US (occurrence: US)
  Receive Date: 20181028
  Receipt Date: 20181028
  Transmission Date: 20190205
  Serious: No
  Sender: FDA-Public Use
  Company Number: US-TEVA-2018-US-967300

PATIENT
  Age: 77 Year
  Sex: Female

DRUGS (10)
  1. AJOVY [Suspect]
     Active Substance: FREMANEZUMAB-VFRM
     Indication: MIGRAINE
     Dates: start: 20181016
  2. DIAZEPAM. [Concomitant]
     Active Substance: DIAZEPAM
  3. LEVODOPA [Concomitant]
     Active Substance: LEVODOPA
  4. OMEPRAZOLE. [Concomitant]
     Active Substance: OMEPRAZOLE
  5. DULOXETINE. [Concomitant]
     Active Substance: DULOXETINE
  6. XARELTO [Concomitant]
     Active Substance: RIVAROXABAN
  7. RAZADONE [Concomitant]
  8. DONETEZIL [Concomitant]
  9. GABAPENTIN. [Concomitant]
     Active Substance: GABAPENTIN
  10. DILT-XR [Concomitant]
     Active Substance: DILTIAZEM

REACTIONS (2)
  - Drug ineffective [Unknown]
  - Headache [Recovered/Resolved]

NARRATIVE: CASE EVENT DATE: 20181016
